FAERS Safety Report 23971300 (Version 1)
Quarter: 2024Q2

REPORT INFORMATION
  Report Type: Spontaneous
  Country: CH (occurrence: CH)
  Receive Date: 20240613
  Receipt Date: 20240613
  Transmission Date: 20240715
  Serious: Yes (Other)
  Sender: FDA-Public Use
  Company Number: None

PATIENT
  Age: 78 Year
  Sex: Female
  Weight: 54.9 kg

DRUGS (32)
  1. ALDACTONE [Suspect]
     Active Substance: SPIRONOLACTONE
     Indication: Hypertension
     Dosage: 50 MG, 1X/DAY
     Route: 048
  2. SIMVASTATIN [Suspect]
     Active Substance: SIMVASTATIN
     Dosage: 20 MG, 1X/DAY
     Route: 048
  3. DAFALGAN [Suspect]
     Active Substance: ACETAMINOPHEN
     Dosage: 500 MG, EVERY 4 HRS
     Route: 048
     Dates: start: 20240408, end: 20240413
  4. ACETAMINOPHEN [Suspect]
     Active Substance: ACETAMINOPHEN
     Dosage: 1000 MG
     Route: 048
     Dates: start: 20240407, end: 20240407
  5. ASPIRIN [Suspect]
     Active Substance: ASPIRIN
     Dosage: 100 MG, 1X/DAY
     Route: 048
  6. LEVOTHYROXINE [Suspect]
     Active Substance: LEVOTHYROXINE\LEVOTHYROXINE SODIUM
     Indication: Hypothyroidism
     Dosage: 0.05 MG, CYCLIC
     Route: 048
  7. LISINOPRIL [Suspect]
     Active Substance: LISINOPRIL
     Indication: Hypertension
     Dosage: 5 MG, 1X/DAY
     Route: 048
  8. METOPROLOL SUCCINATE [Suspect]
     Active Substance: METOPROLOL SUCCINATE
     Indication: Hypertension
     Dosage: 200 MG, 1X/DAY
     Route: 048
  9. ZOLPIDEM TARTRATE [Suspect]
     Active Substance: ZOLPIDEM TARTRATE
     Dosage: 10 MG, AS NEEDED
     Route: 048
  10. MIDAZOLAM MALEATE [Concomitant]
     Active Substance: MIDAZOLAM MALEATE
     Indication: Aspiration bone marrow
     Dosage: 1 MG, IN TOTAL
     Dates: start: 20240408, end: 20240408
  11. MIDAZOLAM MALEATE [Concomitant]
     Active Substance: MIDAZOLAM MALEATE
     Dosage: 1 MG, IN TOTAL
     Dates: start: 20240416, end: 20240416
  12. MORPHINE HYDROCHLORIDE [Concomitant]
     Active Substance: MORPHINE HYDROCHLORIDE
     Indication: Aspiration bone marrow
     Dosage: 1 MG, IN TOTAL
     Dates: start: 20240408, end: 20240408
  13. MORPHINE HYDROCHLORIDE [Concomitant]
     Active Substance: MORPHINE HYDROCHLORIDE
     Dosage: 1 MG, IN TOTAL
     Dates: start: 20240416, end: 20240416
  14. CYKLOKAPRON [Concomitant]
     Active Substance: TRANEXAMIC ACID
     Indication: Haemorrhage
     Dosage: 1000 MG, 3X/DAY
     Route: 048
     Dates: start: 20240407, end: 20240410
  15. VALVERDE SCHLAF [Concomitant]
     Dosage: 1 DF, IN TOTAL
     Route: 048
     Dates: start: 20240411, end: 20240411
  16. ONDANSETRON [Concomitant]
     Active Substance: ONDANSETRON
     Dosage: 4 MG, IN TOTAL
     Route: 048
     Dates: start: 20240412, end: 20240412
  17. DEXAMETHASONE [Concomitant]
     Active Substance: DEXAMETHASONE
     Dosage: 40 MG, 1X/DAY
     Route: 048
     Dates: start: 20240406, end: 20240408
  18. INTRATECT [Concomitant]
     Active Substance: HUMAN IMMUNOGLOBULIN G
     Dosage: 32 G, IN TOTAL
     Dates: start: 20240406, end: 20240406
  19. VISIPAQUE [Concomitant]
     Active Substance: IODIXANOL
     Indication: Computerised tomogram
     Dosage: 110 ML, VISIPAQUE? (IODIXANOL) 652 MG/ML IN TOTAL
     Dates: start: 20240408, end: 20240408
  20. VISIPAQUE [Concomitant]
     Active Substance: IODIXANOL
     Dosage: UNK
  21. FILGRASTIM [Concomitant]
     Active Substance: FILGRASTIM
     Dosage: (3010*6.[IU])IN TOTAL
     Route: 058
     Dates: start: 20240411, end: 20240411
  22. CYCLOSPORINE [Concomitant]
     Active Substance: CYCLOSPORINE
     Dosage: 150 MG, 2X/DAY
     Route: 048
     Dates: start: 20240412, end: 20240417
  23. CYCLOSPORINE [Concomitant]
     Active Substance: CYCLOSPORINE
     Dosage: 125 MG, 2X/DAY
     Route: 048
     Dates: start: 20240417, end: 20240422
  24. CYCLOSPORINE [Concomitant]
     Active Substance: CYCLOSPORINE
     Dosage: 75 MG, 2X/DAY
     Route: 048
     Dates: start: 20240422
  25. BACTRIM [Concomitant]
     Active Substance: SULFAMETHOXAZOLE\TRIMETHOPRIM
     Dosage: 1 DF, CYCLIC
     Route: 048
     Dates: start: 20240414
  26. POSACONAZOLE [Concomitant]
     Active Substance: POSACONAZOLE
     Dosage: 300 MG, 1X/DAY
     Route: 048
     Dates: start: 20240414, end: 20240419
  27. POSACONAZOLE [Concomitant]
     Active Substance: POSACONAZOLE
     Dosage: 200 MG, 1X/DAY
     Route: 048
     Dates: start: 20240420
  28. ELTROMBOPAG OLAMINE [Concomitant]
     Active Substance: ELTROMBOPAG OLAMINE
     Dosage: 150 MG, 1X/DAY
     Route: 048
     Dates: start: 20240423
  29. CEFEPIME [Concomitant]
     Active Substance: CEFEPIME HYDROCHLORIDE
     Indication: Staphylococcal infection
     Dosage: 1 G, 3X/DAY
     Dates: start: 20240407, end: 20240418
  30. VANCOCIN [Concomitant]
     Active Substance: VANCOMYCIN HYDROCHLORIDE
     Indication: Staphylococcal infection
     Dosage: 1425 MG, IN TOTAL
     Dates: start: 20240408, end: 20240408
  31. VANCOCIN [Concomitant]
     Active Substance: VANCOMYCIN HYDROCHLORIDE
     Dosage: 750 MG, IN TOTAL
     Dates: start: 20240409, end: 20240409
  32. KEFZOL [Concomitant]
     Active Substance: CEFAZOLIN SODIUM
     Indication: Staphylococcal infection
     Dosage: 2 G, 3X/DAY
     Dates: start: 20240419

REACTIONS (5)
  - Liver disorder [Recovering/Resolving]
  - Renal impairment [Unknown]
  - Transaminases increased [Recovered/Resolved]
  - Gamma-glutamyltransferase increased [Not Recovered/Not Resolved]
  - Blood alkaline phosphatase increased [Not Recovered/Not Resolved]

NARRATIVE: CASE EVENT DATE: 20240406
